FAERS Safety Report 10467169 (Version 1)
Quarter: 2014Q3

REPORT INFORMATION
  Report Type: Spontaneous
  Country: US (occurrence: US)
  Receive Date: 20140922
  Receipt Date: 20140922
  Transmission Date: 20150326
  Serious: Yes (Hospitalization, Other)
  Sender: FDA-Public Use
  Company Number: US-ELI_LILLY_AND_COMPANY-US201409004092

PATIENT
  Age: 62 Year
  Sex: Female
  Weight: 111.2 kg

DRUGS (12)
  1. IPRATROPIUM BROMIDE. [Concomitant]
     Active Substance: IPRATROPIUM BROMIDE
     Dosage: UNK
     Dates: start: 200510
  2. AMIODARONE [Concomitant]
     Active Substance: AMIODARONE
  3. ADVAIR HFA [Concomitant]
     Active Substance: FLUTICASONE PROPIONATE\SALMETEROL XINAFOATE
     Dosage: UNK
     Dates: start: 20130327
  4. TRUVADA [Suspect]
     Active Substance: EMTRICITABINE\TENOFOVIR DISOPROXIL FUMARATE
     Indication: HIV INFECTION
     Dosage: UNK
     Dates: start: 20071220
  5. TYVASO [Suspect]
     Active Substance: TREPROSTINIL
     Indication: PULMONARY ARTERIAL HYPERTENSION
     Dosage: 216 UG, UNK
     Route: 055
     Dates: start: 20130404
  6. ADCIRCA [Suspect]
     Active Substance: TADALAFIL
     Indication: PULMONARY ARTERIAL HYPERTENSION
     Dosage: 40 MG, QD
     Route: 065
     Dates: start: 20130815
  7. LETAIRIS [Suspect]
     Active Substance: AMBRISENTAN
     Indication: PULMONARY ARTERIAL HYPERTENSION
     Dosage: 10 MG, QD
     Route: 065
     Dates: start: 20111214
  8. WARFARIN [Concomitant]
     Active Substance: WARFARIN
  9. LOTENSIN [Concomitant]
     Active Substance: BENAZEPRIL HYDROCHLORIDE
  10. TIOTROPIUM BROMIDE [Concomitant]
     Active Substance: TIOTROPIUM BROMIDE
     Dosage: UNK
     Dates: start: 200604
  11. CLONAZEPAM. [Concomitant]
     Active Substance: CLONAZEPAM
  12. VIRAMUNE [Concomitant]
     Active Substance: NEVIRAPINE

REACTIONS (6)
  - Pneumonia [Recovered/Resolved]
  - Blood creatinine increased [Recovered/Resolved]
  - Chronic obstructive pulmonary disease [Recovered/Resolved]
  - Blood urea increased [Recovered/Resolved]
  - International normalised ratio increased [Recovered/Resolved]
  - Sepsis [Recovered/Resolved]
